FAERS Safety Report 19185736 (Version 1)
Quarter: 2021Q2

REPORT INFORMATION
  Report Type: Other
  Country: IT (occurrence: IT)
  Receive Date: 20210427
  Receipt Date: 20210427
  Transmission Date: 20210717
  Serious: Yes (Other)
  Sender: FDA-Public Use
  Company Number: IT-COLLEGIUM PHARMACEUTICAL, INC.-2021CGM00428

PATIENT
  Age: 66 Year
  Sex: Male
  Weight: 95 kg

DRUGS (7)
  1. NEURONTIN [Suspect]
     Active Substance: GABAPENTIN
     Indication: PRURITUS
  2. CORTISONE [Concomitant]
     Active Substance: CORTISONE
  3. COUMADIN [Suspect]
     Active Substance: WARFARIN SODIUM
     Indication: ANTICOAGULANT THERAPY
     Dosage: UNK
     Route: 048
     Dates: start: 2020
  4. INSULIN [Concomitant]
     Active Substance: INSULIN NOS
  5. TAPENTADOL [Suspect]
     Active Substance: TAPENTADOL
     Dosage: 100 MG
  6. K [POTASSIUM] [Concomitant]
     Active Substance: POTASSIUM
  7. PANTOPRAZOLE [Concomitant]
     Active Substance: PANTOPRAZOLE

REACTIONS (11)
  - International normalised ratio decreased [Not Recovered/Not Resolved]
  - Peripheral coldness [Unknown]
  - Hyperhidrosis [Unknown]
  - Erectile dysfunction [Unknown]
  - Sexual dysfunction [Unknown]
  - Feeling hot [Unknown]
  - Diabetes mellitus [Unknown]
  - Escherichia urinary tract infection [Unknown]
  - Drug interaction [Unknown]
  - Blood viscosity increased [Unknown]
  - Pallor [Unknown]
